FAERS Safety Report 20340749 (Version 5)
Quarter: 2022Q1

REPORT INFORMATION
  Report Type: Spontaneous
  Country: US (occurrence: None)
  Receive Date: 20220117
  Receipt Date: 20220316
  Transmission Date: 20220423
  Serious: Yes (Other)
  Sender: FDA-Public Use
  Company Number: US-ROCHE-3002857

PATIENT
  Sex: Male

DRUGS (5)
  1. HEMLIBRA [Suspect]
     Active Substance: EMICIZUMAB-KXWH
     Indication: Factor VIII deficiency
     Dosage: STRENGTH : 105 MG/0.7 ML?INJECT 2.95 ML (442.5 MG TOTAL) UNDER THE SKIN EVERY 7 DAYS FOR 4 DOSES. LO
     Route: 058
     Dates: start: 20190422, end: 20190522
  2. HEMLIBRA [Suspect]
     Active Substance: EMICIZUMAB-KXWH
     Route: 058
     Dates: start: 20210325, end: 20210424
  3. TYLENOL [Concomitant]
     Active Substance: ACETAMINOPHEN
     Route: 048
  4. ELOCTATE [Concomitant]
     Active Substance: (1-743)-(1638-2332)-BLOOD-COAGULATION FACTOR VIII (SYNTHETIC HUMAN) FUSION PROTEIN WITH IMMUNOGLOBUL
     Dosage: 8000 UNITS
     Route: 042
     Dates: start: 20190308
  5. DISALCID [Concomitant]
     Active Substance: SALSALATE
     Route: 048
     Dates: start: 20210812

REACTIONS (1)
  - Haemorrhage [Unknown]
